FAERS Safety Report 24367191 (Version 1)
Quarter: 2024Q3

REPORT INFORMATION
  Report Type: Spontaneous
  Country: GB (occurrence: GB)
  Receive Date: 20240926
  Receipt Date: 20240926
  Transmission Date: 20241016
  Serious: Yes (Hospitalization)
  Sender: MYLAN
  Company Number: GB-MYLANLABS-2024M1086154

PATIENT
  Sex: Male

DRUGS (20)
  1. CLOZARIL [Suspect]
     Active Substance: CLOZAPINE
     Indication: Schizophrenia
     Dosage: UNK, PM (EVENING ADMINISTRATION SCHEDULE, TYPICALLY BETWEEN 20:00 AND 23:00)
     Route: 048
     Dates: start: 20240628
  2. CLOZARIL [Suspect]
     Active Substance: CLOZAPINE
     Dosage: 12.5 MILLIGRAM, PM (EVENING ADMINISTRATION SCHEDULE, TYPICALLY BETWEEN 20:00 AND 23:00)
     Route: 048
     Dates: start: 20240703
  3. CLOZARIL [Suspect]
     Active Substance: CLOZAPINE
     Dosage: 25 MILLIGRAM, PM (EVENING ADMINISTRATION SCHEDULE, TYPICALLY BETWEEN 20:00 AND 23:00)
     Route: 048
  4. CLOZARIL [Suspect]
     Active Substance: CLOZAPINE
     Dosage: 50 MILLIGRAM, PM (EVENING ADMINISTRATION SCHEDULE, TYPICALLY BETWEEN 20:00 AND 23:00)
     Route: 048
  5. CLOZARIL [Suspect]
     Active Substance: CLOZAPINE
     Dosage: 75 MILLIGRAM, PM (EVENING ADMINISTRATION SCHEDULE, TYPICALLY BETWEEN 20:00 AND 23:00)
     Route: 048
  6. CLOZARIL [Suspect]
     Active Substance: CLOZAPINE
     Dosage: 100 MILLIGRAM, PM (EVENING ADMINISTRATION SCHEDULE, TYPICALLY BETWEEN 20:00 AND 23:00)
     Route: 048
  7. CLOZARIL [Suspect]
     Active Substance: CLOZAPINE
     Dosage: 175 MILLIGRAM, QD (75MG MORNING, 100MG NIGHT)
     Route: 048
     Dates: start: 202407
  8. CLOZARIL [Suspect]
     Active Substance: CLOZAPINE
     Dosage: 275 MILLIGRAM, PM (ONCE EVERY DAY, ADMIN WINDOWS: NIGHT (20:00 TO 02:00))
     Route: 048
     Dates: start: 20240805
  9. CARBOHYDRATES\FATTY ACIDS\MINERALS\PROTEIN\VITAMINS [Concomitant]
     Active Substance: CARBOHYDRATES\FATTY ACIDS\MINERALS\PROTEIN\VITAMINS
     Dosage: 125 MILLILITER, QID (FOUR TIMES A DAY, ADMIN WINDOWS: MORNING (06:00 TO 10:00), LUNCH (10:00 TO 14:0
     Route: 065
     Dates: start: 20240521
  10. BISOPROLOL [Concomitant]
     Active Substance: BISOPROLOL\BISOPROLOL FUMARATE
     Dosage: 2.5 MILLIGRAM, QD (ONCE EVERY DAY, ADMIN WINDOWS: LUNCH (10:00 TO 14:00) )
     Route: 065
     Dates: start: 20240812
  11. SCOPOLAMINE HYDROBROMIDE [Concomitant]
     Active Substance: SCOPOLAMINE HYDROBROMIDE
     Dosage: 300 MICROGRAM, TID (THREE TIMES A DAY, ADMIN WINDOWS: MORNING (06:00 TO 10:00), EVENING (16:00 TO 20
     Route: 048
     Dates: start: 20240812
  12. AMISULPRIDE [Concomitant]
     Active Substance: AMISULPRIDE
     Dosage: 50 MILLIGRAM, BID (TWICE A DAY, ADMIN WINDOWS: MORNING (06:00 TO 10:00), NIGHT (20:00 TO 02:00))
     Route: 065
     Dates: start: 20240819
  13. LITHIUM [Concomitant]
     Active Substance: LITHIUM
     Dosage: 800 MILLIGRAM, QD (ONCE EVERY DAY, ADMIN WINDOWS: NIGHT (20:00 TO 02:00))
     Route: 065
     Dates: start: 20240909
  14. LORAZEPAM [Concomitant]
     Active Substance: LORAZEPAM
     Dosage: UNK, PRN (1 TO 2MG, MAX DOSE IN 24 HOURS: 4MG. MIN GAP BETWEEN ADMINISTRATIONS: 4 HOURS)
     Route: 065
     Dates: start: 20231005
  15. PROMETHAZINE HYDROCHLORIDE [Concomitant]
     Active Substance: PROMETHAZINE HYDROCHLORIDE
     Dosage: UNK, PRN (25 TO 50MG, MAX DOSE IN 24 HOURS: 50MG. MIN GAP BETWEEN ADMINISTRATIONS: 6 HOURS)
     Route: 065
     Dates: start: 20231005
  16. NICOTINELL [Concomitant]
     Active Substance: NICOTINE
     Dosage: 1 DOSAGE FORM, PRN (MAX DOSE IN 24 HOURS: 10 LOZENGES, MIN GAP BETWEEN ADMINISTRATIONS: 2 HOURS)
     Route: 065
     Dates: start: 20240528
  17. ACETAMINOPHEN [Concomitant]
     Active Substance: ACETAMINOPHEN
     Dosage: 1 GRAM, PRN (MAX DOSE IN 24 HOURS: 4G. MIN GAP BETWEEN ADMINISTRATIONS: 4 HOURS)
     Route: 065
     Dates: start: 20240711
  18. PROCYCLIDINE [Concomitant]
     Active Substance: PROCYCLIDINE
     Dosage: 5 MILLIGRAM, PRN (MAX DOSE IN 24 HOURS: 15MG. MIN GAP BETWEEN ADMINISTRATIONS: 4 HOURS)
     Route: 065
     Dates: start: 20240711
  19. LITHIUM [Concomitant]
     Active Substance: LITHIUM
     Dosage: UNK
     Route: 065
  20. PALIPERIDONE [Concomitant]
     Active Substance: PALIPERIDONE
     Dosage: 75 MILLIGRAM, MONTHLY
     Route: 030

REACTIONS (8)
  - Mental impairment [Unknown]
  - Delusion [Unknown]
  - Sleep disorder [Unknown]
  - Anxiety [Unknown]
  - Disturbance in attention [Unknown]
  - Aggression [Unknown]
  - Asthenia [Unknown]
  - Treatment noncompliance [Unknown]
